FAERS Safety Report 5164072-1 (Version None)
Quarter: 2006Q4

REPORT INFORMATION
  Report Type: 
  Country: None (occurrence: None)
  Receive Date: 20061124
  Receipt Date: 20061109
  Transmission Date: 20070319
  Serious: Yes (Death)
  Sender: FDA-Public Use
  Company Number: 2006141009

PATIENT
  Age: 17 Year

DRUGS (2)
  1. DOXYLAMINE SUCCINATE [Suspect]
     Indication: SUICIDE ATTEMPT
     Dosage: UNSPECIFIED, ORAL
     Route: 048
  2. DEXTROMETHORPHAN HYDROBROMIDE [Suspect]
     Indication: SUICIDE ATTEMPT
     Dosage: UNSPECIFIED; ORAL
     Route: 048

REACTIONS (1)
  - COMPLETED SUICIDE [None]
